FAERS Safety Report 8830017 (Version 2)
Quarter: 2015Q3

REPORT INFORMATION
  Report Type: Report from Study
  Country: US (occurrence: US)
  Receive Date: 20121008
  Receipt Date: 20150805
  Transmission Date: 20151125
  Serious: Yes (Death)
  Sender: FDA-Public Use
  Company Number: US-ROCHE-1130646

PATIENT
  Sex: Male

DRUGS (19)
  1. COMPAZINE [Concomitant]
     Active Substance: PROCHLORPERAZINE MALEATE
     Route: 065
  2. GEMZAR [Concomitant]
     Active Substance: GEMCITABINE HYDROCHLORIDE
     Route: 065
     Dates: start: 20010621
  3. ATIVAN [Concomitant]
     Active Substance: LORAZEPAM
     Route: 065
  4. ASA [Concomitant]
     Active Substance: ASPIRIN
     Route: 065
  5. GEMZAR [Concomitant]
     Active Substance: GEMCITABINE HYDROCHLORIDE
     Route: 065
     Dates: start: 20010628
  6. GEMZAR [Concomitant]
     Active Substance: GEMCITABINE HYDROCHLORIDE
     Route: 065
     Dates: start: 20010802
  7. RITUXAN [Suspect]
     Active Substance: RITUXIMAB
     Indication: HODGKIN^S DISEASE
     Route: 042
     Dates: start: 20011113
  8. DEXAMETASON [Concomitant]
     Active Substance: DEXAMETHASONE
     Route: 065
  9. RITUXAN [Suspect]
     Active Substance: RITUXIMAB
     Route: 042
  10. GEMZAR [Concomitant]
     Active Substance: GEMCITABINE HYDROCHLORIDE
     Route: 065
  11. CHLORAMBUCIL [Concomitant]
     Active Substance: CHLORAMBUCIL
     Dosage: 10 MG/L
     Route: 065
  12. GEMZAR [Concomitant]
     Active Substance: GEMCITABINE HYDROCHLORIDE
     Route: 065
     Dates: start: 20010719
  13. VINBLASTINE [Concomitant]
     Active Substance: VINBLASTINE
     Route: 065
  14. GEMZAR [Concomitant]
     Active Substance: GEMCITABINE HYDROCHLORIDE
     Route: 065
     Dates: start: 20010524
  15. GEMZAR [Concomitant]
     Active Substance: GEMCITABINE HYDROCHLORIDE
     Route: 065
     Dates: start: 20010712
  16. GEMZAR [Concomitant]
     Active Substance: GEMCITABINE HYDROCHLORIDE
     Route: 065
     Dates: start: 20010531
  17. RITUXAN [Suspect]
     Active Substance: RITUXIMAB
     Route: 042
  18. RITUXAN [Suspect]
     Active Substance: RITUXIMAB
     Route: 042
  19. VINCRISTIN [Concomitant]
     Active Substance: VINCRISTINE
     Route: 065

REACTIONS (4)
  - Immunosuppression [Unknown]
  - Infection [Unknown]
  - Death [Fatal]
  - Off label use [Unknown]
